FAERS Safety Report 4361537-7 (Version None)
Quarter: 2004Q2

REPORT INFORMATION
  Report Type: 
  Country: None (occurrence: None)
  Receive Date: 20040521
  Receipt Date: 20040408
  Transmission Date: 20050107
  Serious: No
  Sender: FDA-Public Use
  Company Number: US-GLAXOSMITHKLINE-A0506353A

PATIENT
  Sex: Female

DRUGS (2)
  1. ZYBAN [Suspect]
  2. WELLBUTRIN XL [Suspect]
     Indication: DRUG USE FOR UNKNOWN INDICATION
     Route: 048

REACTIONS (3)
  - DEPRESSION [None]
  - DRUG WITHDRAWAL SYNDROME [None]
  - INSOMNIA [None]
